FAERS Safety Report 12162356 (Version 2)
Quarter: 2016Q2

REPORT INFORMATION
  Report Type: Spontaneous
  Country: JP (occurrence: JP)
  Receive Date: 20160309
  Receipt Date: 20160517
  Transmission Date: 20160815
  Serious: Yes (Hospitalization, Disabling)
  Sender: FDA-Public Use
  Company Number: PHHY2016JP030978

PATIENT
  Age: 72 Year
  Sex: Male
  Weight: 54.7 kg

DRUGS (8)
  1. HYCAMTIN [Suspect]
     Active Substance: TOPOTECAN HYDROCHLORIDE
     Dosage: 1.54 MG, QD
     Route: 042
     Dates: start: 20151207, end: 20151211
  2. SPIRIVA [Concomitant]
     Active Substance: TIOTROPIUM BROMIDE MONOHYDRATE
     Indication: PRODUCT USED FOR UNKNOWN INDICATION
     Dosage: 5 UG, QD
     Route: 065
     Dates: start: 20150825
  3. HYCAMTIN [Suspect]
     Active Substance: TOPOTECAN HYDROCHLORIDE
     Indication: SMALL CELL LUNG CANCER
     Dosage: 1.54 MG, QD
     Route: 042
     Dates: start: 20151110, end: 20151114
  4. CARBOPLATIN. [Concomitant]
     Active Substance: CARBOPLATIN
     Indication: SMALL CELL LUNG CANCER
     Dosage: UNK
     Route: 065
  5. DECADRON [Concomitant]
     Active Substance: DEXAMETHASONE
     Dosage: 8 MG, QD
     Route: 065
     Dates: start: 20151207, end: 20151211
  6. MUCOSOLVAN L [Concomitant]
     Active Substance: AMBROXOL HYDROCHLORIDE
     Indication: RHINORRHOEA
     Dosage: 9 DF, QD
     Route: 048
     Dates: start: 20111130, end: 20151206
  7. BAKUMONDOTO [Concomitant]
     Active Substance: HERBALS
     Indication: COUGH
     Dosage: 9 DF, QD
     Route: 048
     Dates: start: 20151130, end: 20151206
  8. DECADRON [Concomitant]
     Active Substance: DEXAMETHASONE
     Indication: PRODUCT USED FOR UNKNOWN INDICATION
     Dosage: 8 MG, QD
     Route: 065
     Dates: start: 20151110, end: 20151114

REACTIONS (1)
  - Interstitial lung disease [Not Recovered/Not Resolved]

NARRATIVE: CASE EVENT DATE: 20151207
